FAERS Safety Report 9235016 (Version 3)
Quarter: 2013Q3

REPORT INFORMATION
  Report Type: Spontaneous
  Country: DK (occurrence: DE)
  Receive Date: 20130416
  Receipt Date: 20130812
  Transmission Date: 20140515
  Serious: Yes (Life-Threatening, Hospitalization, Congenital Anomaly)
  Sender: FDA-Public Use
  Company Number: DE-FRI-1000044379

PATIENT
  Age: 0 Day
  Sex: Male
  Weight: 1.6 kg

DRUGS (9)
  1. CITALOPRAM [Suspect]
     Dosage: 20 MG
     Route: 064
     Dates: start: 2010
  2. ASS [Concomitant]
     Route: 064
  3. L-THYROXIN [Concomitant]
     Route: 064
  4. PARTUSISTEN [Concomitant]
     Dosage: 480 ML
     Route: 064
  5. CLEXANE [Concomitant]
     Dosage: 20 MG
     Route: 064
  6. BELOC ZOK [Concomitant]
     Route: 064
  7. PROLUTON [Concomitant]
     Dosage: 35.7143 MG
     Route: 064
  8. DIAZEPAM [Concomitant]
  9. CELESTAN [Concomitant]
     Indication: MATERNAL THERAPY TO ENHANCE FOETAL LUNG MATURITY
     Dosage: 12 MG
     Route: 064
     Dates: start: 20120910, end: 20120911

REACTIONS (7)
  - Premature baby [Unknown]
  - Congenital pulmonary hypertension [Unknown]
  - Neonatal respiratory distress syndrome [Recovering/Resolving]
  - Bradycardia neonatal [Unknown]
  - Ventricular septal defect [Not Recovered/Not Resolved]
  - Foetal exposure during pregnancy [Unknown]
  - Caesarean section [Recovered/Resolved]
